FAERS Safety Report 9089033 (Version 2)
Quarter: 2013Q1

REPORT INFORMATION
  Report Type: Spontaneous
  Country: US (occurrence: US)
  Receive Date: 20130201
  Receipt Date: 20130327
  Transmission Date: 20140127
  Serious: No
  Sender: FDA-Public Use
  Company Number: US-B.I. PHARMACEUTICALS,INC./RIDGEFIELD-2013-BI-02763BP

PATIENT
  Age: 66 Year
  Sex: Male

DRUGS (1)
  1. ZANTAC 150 (RANITIDINE HYDROCHLORIDE) [Suspect]

REACTIONS (3)
  - Respiratory tract infection [Unknown]
  - Cough [Unknown]
  - Product quality issue [Unknown]
